FAERS Safety Report 8122427-7 (Version None)
Quarter: 2012Q1

REPORT INFORMATION
  Report Type: 
  Country: None (occurrence: None)
  Receive Date: 20120208
  Receipt Date: 20120206
  Transmission Date: 20120608
  Serious: Yes (Life-Threatening, Hospitalization, Other)
  Sender: FDA-Public Use
  Company Number: DE-GLAXOSMITHKLINE-D0074394A

PATIENT
  Age: 78 Year
  Sex: Female
  Weight: 76 kg

DRUGS (3)
  1. CIPROFLOXACIN [Suspect]
     Indication: SKIN ULCER
     Route: 048
     Dates: start: 20110930, end: 20111004
  2. MULTIPLE MEDICATIONS [Concomitant]
     Route: 065
  3. CEFUROXIME AXETIL [Suspect]
     Indication: SKIN ULCER
     Route: 065
     Dates: start: 20110930, end: 20110930

REACTIONS (8)
  - RENAL FAILURE ACUTE [None]
  - TUBULOINTERSTITIAL NEPHRITIS [None]
  - BLOOD IMMUNOGLOBULIN E INCREASED [None]
  - HYPERSENSITIVITY [None]
  - LEUKOCYTURIA [None]
  - PROTEINURIA [None]
  - RENAL TUBULAR DISORDER [None]
  - EOSINOPHILIA [None]
